FAERS Safety Report 5343689-5 (Version None)
Quarter: 2007Q2

REPORT INFORMATION
  Report Type: 
  Country: None (occurrence: None)
  Receive Date: 20070531
  Receipt Date: 20070517
  Transmission Date: 20071010
  Serious: Yes (Hospitalization)
  Sender: FDA-Public Use
  Company Number: MEDI-0005802

PATIENT
  Age: 53 Year
  Sex: Female
  Weight: 78.0187 kg

DRUGS (21)
  1. ETHYOL [Suspect]
     Indication: RADIOTHERAPY
     Dosage: SEE IMAGE
     Route: 058
     Dates: start: 20070131, end: 20070131
  2. ETHYOL [Suspect]
     Indication: RADIOTHERAPY
     Dosage: SEE IMAGE
     Route: 058
     Dates: start: 20070208, end: 20070214
  3. BENADRYL [Concomitant]
  4. RADIATION THERAPY [Concomitant]
  5. ACTIVELLA [Concomitant]
  6. ALLEGRA [Concomitant]
  7. ATIVAN [Concomitant]
  8. CALCIUM WITH VITAMIN D (COLECALCIFEROL, CALCIUM CARBONATE) [Concomitant]
  9. CARAFATE [Concomitant]
  10. CORGARD [Concomitant]
  11. IMITREX [Concomitant]
  12. LUNESTA [Concomitant]
  13. MARY'S MAGIC MOUTHWASH [Concomitant]
  14. NAPROXEN [Concomitant]
  15. OXYCONTIN [Concomitant]
  16. PROTONIX [Concomitant]
  17. SYNTHROID [Concomitant]
  18. TENORMIN [Concomitant]
  19. :VITAMIN B COMPLEX(PYRIDOXINE HYDROCHLORIDE, THIAMINE HYDROCHLORIDE, R [Concomitant]
  20. WELLBUTRIN [Concomitant]
  21. ZOCOR [Concomitant]

REACTIONS (12)
  - ASTHENIA [None]
  - BODY TEMPERATURE INCREASED [None]
  - CHILLS [None]
  - FATIGUE [None]
  - FLUSHING [None]
  - HYPOTENSION [None]
  - INJECTION SITE ERYTHEMA [None]
  - MALAISE [None]
  - NAUSEA [None]
  - RASH ERYTHEMATOUS [None]
  - RASH PAPULAR [None]
  - SKIN WARM [None]
